FAERS Safety Report 12979658 (Version 19)
Quarter: 2022Q2

REPORT INFORMATION
  Report Type: Report from Study
  Country: US (occurrence: US)
  Receive Date: 20161128
  Receipt Date: 20220521
  Transmission Date: 20220720
  Serious: Yes (Other)
  Sender: FDA-Public Use
  Company Number: None

PATIENT
  Sex: Male

DRUGS (16)
  1. AFINITOR [Suspect]
     Active Substance: EVEROLIMUS
     Indication: Astrocytoma, low grade
     Dosage: 5 MG, QD
     Route: 048
     Dates: start: 20140906
  2. AFINITOR [Suspect]
     Active Substance: EVEROLIMUS
     Dosage: 8 MG, QD (SOLUTION)
     Route: 048
     Dates: start: 20140906
  3. AFINITOR [Suspect]
     Active Substance: EVEROLIMUS
     Dosage: 2 MG, QD
     Route: 048
     Dates: start: 20160906
  4. AFINITOR [Suspect]
     Active Substance: EVEROLIMUS
     Dosage: 8 MG, QD ( (DISPERZ THE LAST WEEK IN FEBRUARY DUE TO LAB LEVEL AT 4)
     Route: 048
  5. AFINITOR [Suspect]
     Active Substance: EVEROLIMUS
     Dosage: 7 MG, UNKNOWN
     Route: 051
  6. AFINITOR [Suspect]
     Active Substance: EVEROLIMUS
     Dosage: 8 MG, QD (DISPERZ)
     Route: 048
  7. SINGULAIR [Concomitant]
     Active Substance: MONTELUKAST SODIUM
     Indication: Product used for unknown indication
     Dosage: UNK
     Route: 065
  8. CYPROHEPTADINE HYDROCHLORIDE [Concomitant]
     Active Substance: CYPROHEPTADINE HYDROCHLORIDE
     Indication: Product used for unknown indication
     Dosage: UNK
     Route: 065
  9. ZOLOFT [Concomitant]
     Active Substance: SERTRALINE HYDROCHLORIDE
     Indication: Product used for unknown indication
     Dosage: UNK
     Route: 065
  10. CLONIDINE [Concomitant]
     Active Substance: CLONIDINE
     Indication: Product used for unknown indication
     Dosage: UNK (PATCH)
     Route: 065
  11. FOLIC ACID [Concomitant]
     Active Substance: FOLIC ACID
     Indication: Product used for unknown indication
     Dosage: UNK
     Route: 065
  12. KENALOG [Concomitant]
     Active Substance: TRIAMCINOLONE ACETONIDE
     Indication: Product used for unknown indication
     Dosage: UNK (PRN)
     Route: 065
  13. DIASTAT [Concomitant]
     Active Substance: DIAZEPAM
     Indication: Product used for unknown indication
     Dosage: UNK
     Route: 065
  14. ATIVAN [Concomitant]
     Active Substance: LORAZEPAM
     Indication: Product used for unknown indication
     Dosage: UNK (PRN)
     Route: 065
  15. PROZAC [Concomitant]
     Active Substance: FLUOXETINE HYDROCHLORIDE
     Indication: Product used for unknown indication
     Dosage: UNK
     Route: 065
  16. TRILEPTAL [Concomitant]
     Active Substance: OXCARBAZEPINE
     Indication: Product used for unknown indication
     Dosage: UNK
     Route: 065

REACTIONS (20)
  - Seizure [Unknown]
  - Nasopharyngitis [Unknown]
  - Neoplasm progression [Unknown]
  - Anxiety [Unknown]
  - Toothache [Unknown]
  - Otorrhoea [Unknown]
  - Hyperaesthesia teeth [Unknown]
  - Blister [Unknown]
  - Illness [Unknown]
  - Blood sodium decreased [Unknown]
  - Lip blister [Unknown]
  - Oral mucosal blistering [Unknown]
  - Pyrexia [Unknown]
  - Diarrhoea [Unknown]
  - Drug level decreased [Unknown]
  - Gastroenteritis viral [Unknown]
  - Ear infection [Unknown]
  - Oral pain [Unknown]
  - Product dose omission issue [Unknown]
  - Incorrect route of product administration [Unknown]
